APPROVED DRUG PRODUCT: MORPHABOND ER
Active Ingredient: MORPHINE SULFATE
Strength: 60MG
Dosage Form/Route: TABLET, EXTENDED RELEASE;ORAL
Application: N206544 | Product #003
Applicant: OHEMO LIFE SCIENCES INC
Approved: Oct 2, 2015 | RLD: Yes | RS: No | Type: DISCN

PATENTS:
Patent 7955619 | Expires: Aug 12, 2028
Patent 10314788 | Expires: Aug 12, 2028